FAERS Safety Report 17365474 (Version 2)
Quarter: 2020Q1

REPORT INFORMATION
  Report Type: Report from Study
  Country: ZA (occurrence: ZA)
  Receive Date: 20200204
  Receipt Date: 20200213
  Transmission Date: 20200409
  Serious: Yes (Hospitalization, Disabling)
  Sender: FDA-Public Use
  Company Number: ZA-ROCHE-2532383

PATIENT
  Sex: Female

DRUGS (1)
  1. ACTEMRA [Suspect]
     Active Substance: TOCILIZUMAB
     Indication: RHEUMATOID ARTHRITIS
     Route: 058
     Dates: start: 201802

REACTIONS (5)
  - Foot deformity [Unknown]
  - Rheumatoid arthritis [Unknown]
  - Foot operation [Recovered/Resolved]
  - Product dose omission [Unknown]
  - Hand deformity [Unknown]
